FAERS Safety Report 9407688 (Version 1)
Quarter: 2013Q3

REPORT INFORMATION
  Report Type: Spontaneous
  Country: US (occurrence: None)
  Receive Date: 20130717
  Receipt Date: 20130717
  Transmission Date: 20140515
  Serious: No
  Sender: FDA-Public Use
  Company Number: None

PATIENT
  Age: 49 Year
  Sex: Male

DRUGS (1)
  1. HUMIRA PEN 40 MG [Suspect]
     Route: 058
     Dates: start: 20121219, end: 20130624

REACTIONS (1)
  - Pericardial effusion [None]
